FAERS Safety Report 14117627 (Version 2)
Quarter: 2019Q1

REPORT INFORMATION
  Report Type: Report from Study
  Country: CH (occurrence: CH)
  Receive Date: 20171023
  Receipt Date: 20190301
  Transmission Date: 20190417
  Serious: Yes (Hospitalization, Other)
  Sender: FDA-Public Use
  Company Number: CH-SHIRE-CH201726314

PATIENT

DRUGS (1)
  1. HUMAN NORMAL IMMUNOGLOBULIN; LIQUID 20 [Suspect]
     Active Substance: HUMAN IMMUNOGLOBULIN G
     Indication: PRODUCT USED FOR UNKNOWN INDICATION
     Dosage: 7 G, 1X/WEEK,SC MOTHER RECEIVED DURING PREGNANCY
     Route: 058

REACTIONS (3)
  - Foetal exposure during pregnancy [Recovered/Resolved]
  - Pneumonia [Recovered/Resolved]
  - Pulmonary malformation [Unknown]

NARRATIVE: CASE EVENT DATE: 20170801
